FAERS Safety Report 8354130-2 (Version None)
Quarter: 2012Q2

REPORT INFORMATION
  Report Type: 
  Country: None (occurrence: None)
  Receive Date: 20120511
  Receipt Date: 20120510
  Transmission Date: 20120825
  Serious: Yes (Other)
  Sender: FDA-Public Use
  Company Number: CN-ROCHE-1067984

PATIENT
  Age: 79 Year
  Sex: Male

DRUGS (1)
  1. XELODA [Suspect]
     Indication: RECTAL CANCER
     Route: 048
     Dates: start: 20120307, end: 20120320

REACTIONS (5)
  - ASTHENIA [None]
  - SKIN DISCOLOURATION [None]
  - ABDOMINAL PAIN [None]
  - CHOLECYSTITIS ACUTE [None]
  - DECREASED APPETITE [None]
